FAERS Safety Report 18543206 (Version 1)
Quarter: 2020Q4

REPORT INFORMATION
  Report Type: Spontaneous
  Country: US (occurrence: US)
  Receive Date: 20201125
  Receipt Date: 20201125
  Transmission Date: 20210114
  Serious: Yes (Hospitalization)
  Sender: FDA-Public Use
  Company Number: US-GW PHARMA-202011USGW04039

PATIENT

DRUGS (1)
  1. EPIDIOLEX [Suspect]
     Active Substance: CANNABIDIOL
     Indication: LENNOX-GASTAUT SYNDROME
     Dosage: 10.015 MG/KG/DAY, 367 MILLIGRAM, BID (FIRST SHIPPED ON 25 JUL 2019)
     Route: 048
     Dates: start: 2019

REACTIONS (3)
  - Product dose omission issue [Unknown]
  - Seizure [Unknown]
  - Product distribution issue [Unknown]
